FAERS Safety Report 7259550-5 (Version None)
Quarter: 2011Q1

REPORT INFORMATION
  Report Type: 
  Country: None (occurrence: None)
  Receive Date: 20110130
  Receipt Date: 20100915
  Transmission Date: 20110831
  Serious: No
  Sender: FDA-Public Use
  Company Number: US-ABBOTT-10P-163-0670941-00

PATIENT
  Age: 58 Year
  Sex: Female

DRUGS (8)
  1. PROTONIX [Concomitant]
     Indication: GASTROOESOPHAGEAL REFLUX DISEASE
  2. ATENOLOL [Concomitant]
     Indication: ATRIAL FIBRILLATION
  3. SIMVASTATIN [Concomitant]
     Indication: BLOOD CHOLESTEROL INCREASED
  4. MULTIVITAMIN [Concomitant]
     Indication: PRODUCT USED FOR UNKNOWN INDICATION
  5. HUMIRA [Suspect]
     Indication: CROHN'S DISEASE
     Dosage: 80MG NEXT DOSE AND THEN 40MG QOW
     Dates: start: 20100908
  6. CALCIUM +D [Concomitant]
     Indication: OSTEOPENIA
  7. PROBIOTICS [Concomitant]
     Indication: PROBIOTIC THERAPY
  8. ENTOCORT EC [Concomitant]
     Indication: PRODUCT USED FOR UNKNOWN INDICATION

REACTIONS (4)
  - INJECTION SITE HAEMORRHAGE [None]
  - NAUSEA [None]
  - INJECTION SITE HAEMATOMA [None]
  - HEADACHE [None]
